FAERS Safety Report 13194270 (Version 1)
Quarter: 2017Q1

REPORT INFORMATION
  Report Type: Spontaneous
  Country: US (occurrence: US)
  Receive Date: 20170207
  Receipt Date: 20170207
  Transmission Date: 20170428
  Serious: No
  Sender: FDA-Public Use
  Company Number: US-JAZZ-2016-US-021580

PATIENT
  Sex: Female

DRUGS (4)
  1. XYREM [Suspect]
     Active Substance: SODIUM OXYBATE
     Indication: NARCOLEPSY
     Dosage: 1 G, BID
     Route: 048
     Dates: start: 201210, end: 2014
  2. CLARITIN [Concomitant]
     Active Substance: LORATADINE
  3. XYREM [Suspect]
     Active Substance: SODIUM OXYBATE
     Indication: CATAPLEXY
     Dosage: 3.75 G, BID
     Route: 048
     Dates: start: 201603
  4. MULTIVITAMINS                      /00116001/ [Concomitant]

REACTIONS (8)
  - Head injury [Unknown]
  - Blood potassium decreased [Not Recovered/Not Resolved]
  - Abdominal pain upper [Unknown]
  - Memory impairment [Unknown]
  - Confusional state [Unknown]
  - Accidental overdose [Unknown]
  - Nasopharyngitis [Unknown]
  - Unevaluable event [Unknown]
